FAERS Safety Report 15523426 (Version 1)
Quarter: 2018Q4

REPORT INFORMATION
  Report Type: Report from Study
  Country: DO (occurrence: DO)
  Receive Date: 20181018
  Receipt Date: 20181018
  Transmission Date: 20190205
  Serious: Yes (Hospitalization, Other)
  Sender: FDA-Public Use
  Company Number: PHHY2018DO053940

PATIENT
  Sex: Male
  Weight: 45 kg

DRUGS (9)
  1. EXJADE [Suspect]
     Active Substance: DEFERASIROX
     Indication: SICKLE CELL ANAEMIA
  2. EXJADE [Suspect]
     Active Substance: DEFERASIROX
     Indication: OCULAR ICTERUS
  3. VITAMINE C [Concomitant]
     Active Substance: ASCORBIC ACID
     Indication: PRODUCT USED FOR UNKNOWN INDICATION
     Dosage: 1 DF, QD
     Route: 048
  4. HYDROXYUREA. [Concomitant]
     Active Substance: HYDROXYUREA
     Indication: PRODUCT USED FOR UNKNOWN INDICATION
     Dosage: 500 MG, QD
     Route: 048
  5. EXJADE [Suspect]
     Active Substance: DEFERASIROX
     Indication: PALLOR
  6. EXJADE [Suspect]
     Active Substance: DEFERASIROX
     Indication: CONDITION AGGRAVATED
     Dosage: 500 MG, UNK
     Route: 065
     Dates: end: 20180715
  7. EXJADE [Suspect]
     Active Substance: DEFERASIROX
     Indication: HAEMOGLOBIN DECREASED
  8. FOLIC ACID. [Concomitant]
     Active Substance: FOLIC ACID
     Indication: PRODUCT USED FOR UNKNOWN INDICATION
     Dosage: 1 DF, QD
     Route: 048
  9. VITAMIN B COMPLEX [Concomitant]
     Active Substance: CYANOCOBALAMIN\DEXPANTHENOL\NIACINAMIDE\PYRIDOXINE HYDROCHLORIDE\RIBOFLAVIN 5^-PHOSPHATE SODIUM\THIAMINE HYDROCHLORIDE\VITAMIN B COMPLEX
     Indication: PRODUCT USED FOR UNKNOWN INDICATION
     Dosage: 1 DF, QD
     Route: 048

REACTIONS (10)
  - Arthralgia [Recovering/Resolving]
  - Influenza [Unknown]
  - Anaemia [Unknown]
  - Bone pain [Recovering/Resolving]
  - Pyrexia [Unknown]
  - Neck pain [Unknown]
  - Product use in unapproved indication [Unknown]
  - Abdominal pain upper [Unknown]
  - Condition aggravated [Unknown]
  - Pain in extremity [Unknown]
